FAERS Safety Report 6539651-7 (Version None)
Quarter: 2010Q1

REPORT INFORMATION
  Report Type: 
  Country: None (occurrence: None)
  Receive Date: 20100115
  Receipt Date: 20100112
  Transmission Date: 20100710
  Serious: Yes (Life-Threatening)
  Sender: FDA-Public Use
  Company Number: JP-ROCHE-672897

PATIENT
  Sex: Male

DRUGS (3)
  1. TOCILIZUMAB [Suspect]
     Indication: RHEUMATOID ARTHRITIS
     Route: 041
     Dates: start: 20090825, end: 20090825
  2. TOCILIZUMAB [Suspect]
     Route: 041
     Dates: start: 20090905, end: 20090925
  3. TOCILIZUMAB [Suspect]
     Route: 041
     Dates: start: 20091023, end: 20091023

REACTIONS (1)
  - LUNG NEOPLASM MALIGNANT [None]
